FAERS Safety Report 24585983 (Version 3)
Quarter: 2025Q1

REPORT INFORMATION
  Report Type: Report from Study
  Country: CH (occurrence: CH)
  Receive Date: 20241106
  Receipt Date: 20250129
  Transmission Date: 20250408
  Serious: No
  Sender: TRAVERE THERAPEUTICS
  Company Number: TRAVERE

PATIENT
  Age: 42 Year
  Sex: Female

DRUGS (2)
  1. FILSPARI [Suspect]
     Active Substance: SPARSENTAN
     Indication: IgA nephropathy
     Dosage: 200 MG, QD
     Route: 065
  2. DAPAGLIFLOZIN [Concomitant]
     Active Substance: DAPAGLIFLOZIN

REACTIONS (6)
  - Hypotension [Unknown]
  - Wrong technique in product usage process [Unknown]
  - Presyncope [Unknown]
  - High density lipoprotein decreased [Unknown]
  - Off label use [Unknown]
  - Product prescribing error [Unknown]
